FAERS Safety Report 22953706 (Version 2)
Quarter: 2023Q4

REPORT INFORMATION
  Report Type: Report from Study
  Country: US (occurrence: US)
  Receive Date: 20230918
  Receipt Date: 20231023
  Transmission Date: 20240109
  Serious: Yes (Other)
  Sender: FDA-Public Use
  Company Number: US-ARGENX-2023-ARGX-US003071

PATIENT

DRUGS (2)
  1. VYVGART [Suspect]
     Active Substance: EFGARTIGIMOD ALFA-FCAB
     Indication: Myasthenia gravis
     Dosage: 10 MG/KG
     Route: 042
     Dates: start: 20230410
  2. MESTINON [Concomitant]
     Active Substance: PYRIDOSTIGMINE BROMIDE
     Indication: Product used for unknown indication
     Dosage: UNK
     Route: 065

REACTIONS (6)
  - Renal impairment [Not Recovered/Not Resolved]
  - Biliary obstruction [Unknown]
  - Cholelithotomy [Unknown]
  - Diarrhoea [Unknown]
  - Dehydration [Unknown]
  - Therapy non-responder [Unknown]
